FAERS Safety Report 19649209 (Version 1)
Quarter: 2021Q3

REPORT INFORMATION
  Report Type: Spontaneous
  Country: CA (occurrence: CA)
  Receive Date: 20210803
  Receipt Date: 20210803
  Transmission Date: 20211014
  Serious: Yes (Hospitalization, Other)
  Sender: FDA-Public Use
  Company Number: CA-ALKEM LABORATORIES LIMITED-CA-ALKEM-2020-08015

PATIENT
  Age: 47 Year
  Sex: Female

DRUGS (1)
  1. CEFUROXIME AXETIL. [Suspect]
     Active Substance: CEFUROXIME AXETIL
     Indication: PRODUCT USED FOR UNKNOWN INDICATION
     Dosage: UNK(10 NG/ML)
     Route: 065

REACTIONS (6)
  - Hypotension [Recovered/Resolved]
  - Erythema [Unknown]
  - Angioedema [Unknown]
  - Dizziness [Unknown]
  - Pruritus [Unknown]
  - Anaphylactic reaction [Unknown]
